FAERS Safety Report 9522037 (Version 1)
Quarter: 2013Q1

REPORT INFORMATION
  Report Type: Spontaneous
  Country: US (occurrence: None)
  Receive Date: 20130305
  Receipt Date: 20130305
  Transmission Date: 20140127
  Serious: Yes (Other)
  Sender: FDA-Public Use
  Company Number: 163-21880-12033019

PATIENT
  Age: 87 Year
  Sex: Male
  Weight: 102.6 kg

DRUGS (17)
  1. REVLIMID [Suspect]
     Indication: PLASMA CELL MYELOMA
     Dosage: 10 MG, M-W-F AFTER DIALYSIS, PO
     Route: 048
     Dates: start: 201202, end: 20120319
  2. ALLOPURINOL (ALLOPURINOL) [Concomitant]
  3. ASPIRIN (ACETYLSALICYLIC ACID) [Concomitant]
  4. DIALYSIS VITAMIN [Concomitant]
  5. CELEXA (CITALOPRAM HYDROBROMIDE) [Concomitant]
  6. DECADRON (DEXAMETHASONE) [Concomitant]
  7. VITAMIN D (ERGOCALCIFEROL) [Concomitant]
  8. FENTANYL (FENTANYL) (POULTICE OR PATCH) [Concomitant]
  9. FLOVENT (FLUTICASONE PROPIONATE) [Concomitant]
  10. IMDUR (ISOSORBIDE MONONITRATE) [Concomitant]
  11. SYNTHROID (LEVOTHYROXINE SODIUM) [Concomitant]
  12. REMERON (MIRTAZAPINE) [Concomitant]
  13. PRILOSEC [Concomitant]
  14. MIRALAX [Concomitant]
  15. SENOKOT (SENNA FRUIT) [Concomitant]
  16. JANUVIA (SITAGLIPTIN PHOSPHATE) [Concomitant]
  17. VALTREX (VALACICLOVIR HYDROCHLORIDE) [Concomitant]

REACTIONS (5)
  - Renal failure [None]
  - Tremor [None]
  - Diarrhoea [None]
  - Asthenia [None]
  - Fatigue [None]
